FAERS Safety Report 13961416 (Version 1)
Quarter: 2017Q3

REPORT INFORMATION
  Report Type: Spontaneous
  Country: US (occurrence: US)
  Receive Date: 20170912
  Receipt Date: 20170912
  Transmission Date: 20171128
  Serious: Yes (Hospitalization)
  Sender: FDA-Public Use
  Company Number: US-TEVA-799603ACC

PATIENT
  Sex: Female

DRUGS (1)
  1. MIMVEY LO [Suspect]
     Active Substance: ESTRADIOL\NORETHINDRONE ACETATE
     Indication: MENOPAUSE
     Dosage: DOSE STRENGTH:  0.5 MG/0.1 MG

REACTIONS (2)
  - Metrorrhagia [Recovered/Resolved]
  - Transient global amnesia [Unknown]

NARRATIVE: CASE EVENT DATE: 201708
